FAERS Safety Report 10428413 (Version 3)
Quarter: 2015Q3

REPORT INFORMATION
  Report Type: Spontaneous
  Country: US (occurrence: US)
  Receive Date: 20140903
  Receipt Date: 20150806
  Transmission Date: 20151125
  Serious: Yes (Hospitalization, Other)
  Sender: FDA-Public Use
  Company Number: US-GLAXOSMITHKLINE-A1087582A

PATIENT
  Age: 55 Year
  Sex: Female

DRUGS (19)
  1. NASOCORT [Concomitant]
     Active Substance: BUDESONIDE
  2. CELEXA [Concomitant]
     Active Substance: CITALOPRAM HYDROBROMIDE
  3. METFORMIN [Concomitant]
     Active Substance: METFORMIN HYDROCHLORIDE
  4. LAMICTAL [Suspect]
     Active Substance: LAMOTRIGINE
     Indication: DEPRESSION
     Dosage: 200 MG, QD
     Route: 048
  5. ABILIFY [Concomitant]
     Active Substance: ARIPIPRAZOLE
  6. HYDROCODONE [Concomitant]
     Active Substance: HYDROCODONE
  7. KLONOPIN [Concomitant]
     Active Substance: CLONAZEPAM
  8. BREO ELLIPTA [Suspect]
     Active Substance: FLUTICASONE FUROATE\VILANTEROL TRIFENATATE
     Indication: RESPIRATORY DISORDER
     Dosage: 1 PUFF(S), BID
     Route: 055
  9. SEROQUEL [Concomitant]
     Active Substance: QUETIAPINE FUMARATE
  10. AMBIEN [Concomitant]
     Active Substance: ZOLPIDEM TARTRATE
  11. ALBUTEROL INHALER [Concomitant]
     Active Substance: ALBUTEROL
  12. XARELTO [Concomitant]
     Active Substance: RIVAROXABAN
  13. COUMADIN [Concomitant]
     Active Substance: WARFARIN SODIUM
  14. TAMIFLU [Concomitant]
     Active Substance: OSELTAMIVIR PHOSPHATE
  15. ADVAIR HFA [Suspect]
     Active Substance: FLUTICASONE PROPIONATE\SALMETEROL XINAFOATE
     Indication: ASTHMA
     Dosage: 1 PUFF(S), BID
     Route: 055
     Dates: start: 2002
  16. ADVAIR HFA [Suspect]
     Active Substance: FLUTICASONE PROPIONATE\SALMETEROL XINAFOATE
     Indication: RESPIRATORY DISORDER
  17. BREO ELLIPTA [Suspect]
     Active Substance: FLUTICASONE FUROATE\VILANTEROL TRIFENATATE
     Indication: ASTHMA
     Dosage: 1 PUFF(S), QD
     Route: 055
     Dates: start: 2013
  18. LAMICTAL [Suspect]
     Active Substance: LAMOTRIGINE
     Indication: POST-TRAUMATIC STRESS DISORDER
     Dosage: 150 MG, QD
     Route: 048
  19. INFLUENZA VACCINE UNSPECIFIED 2014-2015 SEASON [Concomitant]
     Active Substance: INFLUENZA VIRUS VACCINE

REACTIONS (11)
  - Neoplasm [Unknown]
  - Hysterectomy [Recovered/Resolved]
  - Wheezing [Unknown]
  - Inability to afford medication [Unknown]
  - Pulmonary embolism [Not Recovered/Not Resolved]
  - Dyspnoea [Unknown]
  - Influenza [Recovering/Resolving]
  - Breast cancer [Recovering/Resolving]
  - Neoplasm malignant [Unknown]
  - Drug ineffective [Unknown]
  - Endometrial cancer [Unknown]

NARRATIVE: CASE EVENT DATE: 2012
